FAERS Safety Report 8843489 (Version 2)
Quarter: 2012Q4

REPORT INFORMATION
  Report Type: 
  Country: US (occurrence: US)
  Receive Date: 20121016
  Receipt Date: 20121121
  Transmission Date: 20130627
  Serious: No
  Sender: FDA-Public Use
  Company Number: US-ENDO PHARMACEUTICALS INC.-PRED20120062

PATIENT
  Age: 52 Year
  Sex: Male
  Weight: 95.91 kg

DRUGS (6)
  1. PREDNISONE TABLETS USP 5MG (NO PREF. NAME) [Suspect]
     Indication: COUGH
     Route: 048
     Dates: start: 20120922, end: 20120924
  2. PREDNISONE TABLETS USP 5MG (NO PREF. NAME) [Suspect]
     Indication: WHEEZING
  3. PREDNISONE TABLETS USP 5MG (NO PREF. NAME) [Suspect]
     Indication: UPPER RESPIRATORY TRACT INFECTION
  4. PREDNISONE TABLETS USP 5MG (NO PREF. NAME) [Suspect]
     Indication: SINUSITIS
  5. HYDROCODONE/ACETAMINOPHEN 10MG/500MG [Concomitant]
     Indication: PRODUCT USED FOR UNKNOWN INDICATION
     Dosage: 40/2000 MG
     Route: 048
     Dates: start: 2009
  6. AUGMENTIN [Concomitant]
     Indication: SINUSITIS
     Dosage: 875/125 MG
     Route: 048
     Dates: start: 20120922, end: 20120924

REACTIONS (4)
  - Rhabdomyolysis [Unknown]
  - Hypokalaemia [Recovered/Resolved]
  - Dysstasia [Recovered/Resolved]
  - Fall [Recovered/Resolved]
